FAERS Safety Report 18311254 (Version 1)
Quarter: 2020Q3

REPORT INFORMATION
  Report Type: Spontaneous
  Country: US (occurrence: US)
  Receive Date: 20200925
  Receipt Date: 20200925
  Transmission Date: 20201103
  Serious: No
  Sender: FDA-Public Use
  Company Number: US-AUROBINDO-AUR-APL-2020-037745

PATIENT
  Age: 37 Year
  Sex: Female

DRUGS (1)
  1. PROGESTERONE INJECTION USP 500MG/10ML MULTIPLE?DOSE VIAL [Suspect]
     Active Substance: PROGESTERONE
     Indication: INFERTILITY
     Dosage: 2 MILLILITER, EVERY OTHER DAY
     Route: 030
     Dates: start: 20200625

REACTIONS (2)
  - Erythema [Unknown]
  - Injection site reaction [Unknown]
